FAERS Safety Report 15712366 (Version 9)
Quarter: 2022Q1

REPORT INFORMATION
  Report Type: Other
  Country: US (occurrence: None)
  Receive Date: 20181212
  Receipt Date: 20220330
  Transmission Date: 20220424
  Serious: Yes (Hospitalization, Other)
  Sender: FDA-Public Use
  Company Number: US-ROCHE-2224911

PATIENT
  Sex: Female
  Weight: 129.39 kg

DRUGS (65)
  1. OCREVUS [Suspect]
     Active Substance: OCRELIZUMAB
     Indication: Relapsing-remitting multiple sclerosis
     Route: 042
     Dates: start: 20171129
  2. OCREVUS [Suspect]
     Active Substance: OCRELIZUMAB
     Dosage: NEXT INFUSION 18/DEC/2018
     Route: 042
     Dates: start: 20180618
  3. OCREVUS [Suspect]
     Active Substance: OCRELIZUMAB
     Dosage: ONGOING:YES
     Route: 042
  4. OCREVUS [Suspect]
     Active Substance: OCRELIZUMAB
     Dosage: ONGOING:NO
     Route: 042
  5. OCREVUS [Suspect]
     Active Substance: OCRELIZUMAB
     Route: 042
  6. OCREVUS [Suspect]
     Active Substance: OCRELIZUMAB
     Route: 042
  7. OCREVUS [Suspect]
     Active Substance: OCRELIZUMAB
     Dosage: 19/JUN/2019
     Route: 042
     Dates: start: 20181218
  8. OCREVUS [Suspect]
     Active Substance: OCRELIZUMAB
     Route: 042
     Dates: start: 2017
  9. MACROBID [Concomitant]
     Active Substance: NITROFURANTOIN\NITROFURANTOIN MONOHYDRATE
  10. CYANOCOBALAMIN [Concomitant]
     Active Substance: CYANOCOBALAMIN
  11. KEFLEX [Concomitant]
     Active Substance: CEPHALEXIN
     Dosage: 10 DAY DOSAGE
     Dates: start: 20181129
  12. ALBUTEROL [Concomitant]
     Active Substance: ALBUTEROL
     Dosage: 90 MCG/ACT
     Route: 055
  13. CHOLECALCIFEROL [Concomitant]
     Active Substance: CHOLECALCIFEROL
     Route: 048
  14. DOCUSATE SODIUM [Concomitant]
     Active Substance: DOCUSATE SODIUM
     Route: 048
  15. DULOXETINE [Concomitant]
     Active Substance: DULOXETINE
     Route: 048
  16. HYDROMORPHONE [Concomitant]
     Active Substance: HYDROMORPHONE
     Indication: Pain
     Dosage: EVERY 3 HOURS AS NEEDED
  17. HYDROMORPHONE [Concomitant]
     Active Substance: HYDROMORPHONE
     Route: 048
  18. IBUPROFEN [Concomitant]
     Active Substance: IBUPROFEN
     Indication: Pain
     Dosage: EVERY 6 HOURS AS NEEDED
  19. LEVOCETIRIZINE [Concomitant]
     Active Substance: LEVOCETIRIZINE
     Route: 048
  20. LYRICA [Concomitant]
     Active Substance: PREGABALIN
     Route: 048
  21. MAGNESIUM OXIDE [Concomitant]
     Active Substance: MAGNESIUM OXIDE
  22. MECLIZINE [Concomitant]
     Active Substance: MECLIZINE HYDROCHLORIDE
     Route: 048
  23. MEDROXYPROGESTERONE ACETATE [Concomitant]
     Active Substance: MEDROXYPROGESTERONE ACETATE
  24. METHYLPREDNISOLONE SODIUM SUCCINATE [Concomitant]
     Active Substance: METHYLPREDNISOLONE SODIUM SUCCINATE
     Dosage: INJECT 8 MLS INTO VEINS EVERY 24 HOURS FOR 5 DAYS.?1000MG/8ML INJECTION
  25. MODAFINIL [Concomitant]
     Active Substance: MODAFINIL
     Dosage: 1-2 TABLES DAILY
     Route: 048
  26. NYSTATIN [Concomitant]
     Active Substance: NYSTATIN
     Route: 061
  27. NYSTATIN [Concomitant]
     Active Substance: NYSTATIN
     Dosage: POWDER
  28. ONDANSETRON [Concomitant]
     Active Substance: ONDANSETRON
     Dosage: EVERY 6 HOURS
     Route: 048
  29. PEGINTERFERON BETA-1A [Concomitant]
     Active Substance: PEGINTERFERON BETA-1A
     Dosage: 125 MCG/0.5ML?0.5 ML UNDER THE SKIN
  30. PREGABALIN [Concomitant]
     Active Substance: PREGABALIN
     Route: 048
  31. PSEUDOEPHEDRINE [Concomitant]
     Active Substance: PSEUDOEPHEDRINE
     Route: 048
  32. RIVAROXABAN [Concomitant]
     Active Substance: RIVAROXABAN
     Dosage: EVERY EVENING
     Route: 048
  33. SIMVASTATIN [Concomitant]
     Active Substance: SIMVASTATIN
     Route: 048
  34. TIZANIDINE [Concomitant]
     Active Substance: TIZANIDINE
     Dosage: 4 MG 4 TIMES DAILY
     Route: 048
  35. TOPIRAMATE [Concomitant]
     Active Substance: TOPIRAMATE
     Route: 048
  36. LIDOCAINE [Concomitant]
     Active Substance: LIDOCAINE
  37. CIPROFLOXACIN [Concomitant]
     Active Substance: CIPROFLOXACIN
  38. ADVAIR DISKUS [Concomitant]
     Active Substance: FLUTICASONE PROPIONATE\SALMETEROL XINAFOATE
  39. METHAMPHETAMINE [Concomitant]
     Active Substance: METHAMPHETAMINE
  40. PLEGRIDY [Concomitant]
     Active Substance: PEGINTERFERON BETA-1A
  41. ACETAMINOPHEN [Concomitant]
     Active Substance: ACETAMINOPHEN
     Indication: Pain
     Dosage: UNSURE IF STARTED BEFORE OR AFTER OCREVUS
     Route: 048
  42. WELLBUTRIN [Concomitant]
     Active Substance: BUPROPION HYDROCHLORIDE
     Indication: Anxiety
     Dosage: TAKES 50 MG (1/2 TAB) IN THE MORNING, 100 MG AT NOON; STARTED BEFORE?OCREVUS
     Route: 048
  43. ELIQUIS [Concomitant]
     Active Substance: APIXABAN
     Dosage: STARTED BEFORE OCREVUS
     Route: 048
  44. GABAPENTIN [Concomitant]
     Active Substance: GABAPENTIN
     Indication: Pain
     Dosage: (1) 300 MG AND (1) 600 MG; STARTED BEFORE OCREVUS
     Route: 048
  45. GABAPENTIN [Concomitant]
     Active Substance: GABAPENTIN
     Indication: Neuropathy peripheral
  46. XYZAL [Concomitant]
     Active Substance: LEVOCETIRIZINE DIHYDROCHLORIDE
     Indication: Hypersensitivity
     Dosage: TAKES AT NIGHT; STARTED BEFORE OCREVUS
     Route: 048
  47. METHENAMINE [Concomitant]
     Active Substance: METHENAMINE
     Indication: Urinary tract infection
     Route: 048
  48. VITAMIN C [Concomitant]
     Active Substance: ASCORBIC ACID
     Indication: Urinary tract infection
     Route: 048
  49. PROVIGIL [Concomitant]
     Active Substance: MODAFINIL
     Route: 048
  50. OMEPRAZOLE [Concomitant]
     Active Substance: OMEPRAZOLE
     Route: 048
  51. HERBALS\PLANTAGO OVATA SEED COAT [Concomitant]
     Active Substance: HERBALS\PLANTAGO OVATA SEED COAT
     Route: 048
  52. TRAMADOL [Concomitant]
     Active Substance: TRAMADOL
     Indication: Muscle spasms
     Route: 048
  53. EMGALITY [Concomitant]
     Active Substance: GALCANEZUMAB-GNLM
     Indication: Migraine
     Dosage: DOSE NOT KNOWN BY PATIENT; STARTED AFTER OCREVUS
     Route: 058
  54. SUMATRIPTAN [Concomitant]
     Active Substance: SUMATRIPTAN
     Indication: Migraine
     Route: 058
  55. TUMS [Concomitant]
     Active Substance: CALCIUM CARBONATE
     Route: 048
  56. FISH OIL [Concomitant]
     Active Substance: FISH OIL
     Route: 048
  57. ESTRING [Concomitant]
     Active Substance: ESTRADIOL
     Indication: Vulvovaginal dryness
     Route: 067
  58. TOPAMAX [Concomitant]
     Active Substance: TOPIRAMATE
  59. NORTRIPTYLINE [Concomitant]
     Active Substance: NORTRIPTYLINE
  60. EFFEXOR XR [Concomitant]
     Active Substance: VENLAFAXINE HYDROCHLORIDE
  61. COLACE [Concomitant]
     Active Substance: DOCUSATE SODIUM
     Route: 048
  62. CYMBALTA [Concomitant]
     Active Substance: DULOXETINE HYDROCHLORIDE
     Route: 048
  63. ELIQUIS [Concomitant]
     Active Substance: APIXABAN
     Route: 048
  64. ESTRING [Concomitant]
     Active Substance: ESTRADIOL
     Route: 067
  65. MONUROL [Concomitant]
     Active Substance: FOSFOMYCIN TROMETHAMINE

REACTIONS (27)
  - Kidney infection [Recovering/Resolving]
  - Multiple sclerosis relapse [Recovered/Resolved]
  - Postoperative wound complication [Not Recovered/Not Resolved]
  - Urinary tract infection [Not Recovered/Not Resolved]
  - Fall [Unknown]
  - Nephrolithiasis [Not Recovered/Not Resolved]
  - Depression [Not Recovered/Not Resolved]
  - Cystitis [Not Recovered/Not Resolved]
  - Memory impairment [Not Recovered/Not Resolved]
  - Tremor [Not Recovered/Not Resolved]
  - Fatigue [Not Recovered/Not Resolved]
  - Muscular weakness [Not Recovered/Not Resolved]
  - Muscle spasticity [Not Recovered/Not Resolved]
  - Dizziness [Not Recovered/Not Resolved]
  - Band sensation [Not Recovered/Not Resolved]
  - COVID-19 [Recovered/Resolved]
  - Neurogenic bladder [Not Recovered/Not Resolved]
  - Vulvovaginal dryness [Not Recovered/Not Resolved]
  - Uterine polyp [Recovered/Resolved]
  - Postmenopausal haemorrhage [Recovered/Resolved]
  - Cystocele [Unknown]
  - Rectocele [Unknown]
  - Abdominal hernia [Recovered/Resolved]
  - Dysphagia [Unknown]
  - Vision blurred [Unknown]
  - COVID-19 pneumonia [Recovered/Resolved]
  - Drug ineffective [Unknown]

NARRATIVE: CASE EVENT DATE: 20180101
